FAERS Safety Report 4885389-1 (Version None)
Quarter: 2005Q4

REPORT INFORMATION
  Report Type: 
  Country: None (occurrence: None)
  Receive Date: 20051220
  Receipt Date: 20050214
  Transmission Date: 20060501
  Serious: Yes (Other)
  Sender: FDA-Public Use
  Company Number: HQWYE408618FEB05

PATIENT
  Age: 39 Year
  Sex: Female

DRUGS (1)
  1. EFFEXOR XR [Suspect]
     Indication: ANXIETY
     Dosage: 37.5MG/75 MG ONCE DAILY, ORAL
     Route: 048
     Dates: start: 20050101, end: 20050101

REACTIONS (4)
  - DECREASED APPETITE [None]
  - MOUTH INJURY [None]
  - POLYDIPSIA [None]
  - THIRST [None]
